FAERS Safety Report 20027540 (Version 1)
Quarter: 2021Q4

REPORT INFORMATION
  Report Type: Report from Study
  Country: US (occurrence: US)
  Receive Date: 20211103
  Receipt Date: 20211103
  Transmission Date: 20220303
  Serious: Yes (Hospitalization)
  Sender: FDA-Public Use
  Company Number: US-NOVOPROD-862528

PATIENT
  Age: 75 Year
  Sex: Female

DRUGS (2)
  1. OZEMPIC [Suspect]
     Active Substance: SEMAGLUTIDE
     Indication: Diabetes mellitus
     Dosage: 0.5 MG, QW
     Route: 058
  2. NOVOLOG [Concomitant]
     Active Substance: INSULIN ASPART
     Indication: Diabetes mellitus
     Dosage: 20 IU, TID
     Route: 058

REACTIONS (4)
  - Drug interaction [Unknown]
  - Feeding disorder [Unknown]
  - Illness [Unknown]
  - Dehydration [Unknown]
